FAERS Safety Report 4932782-4 (Version None)
Quarter: 2006Q1

REPORT INFORMATION
  Report Type: 
  Country: None (occurrence: None)
  Receive Date: 20060306
  Receipt Date: 20060124
  Transmission Date: 20060701
  Serious: Yes (Hospitalization)
  Sender: FDA-Public Use
  Company Number: JP-BOEHRINGER INGELHEIM PHARMACEUTICALS, INC.-2006-BP-01279YA

PATIENT
  Sex: Male
  Weight: 47.5 kg

DRUGS (9)
  1. HARNAL [Suspect]
     Indication: BENIGN PROSTATIC HYPERPLASIA
     Route: 048
     Dates: start: 20060106, end: 20060124
  2. LASIX [Concomitant]
     Indication: RIGHT VENTRICULAR FAILURE
  3. ITRIZOLE [Concomitant]
     Indication: BRONCHOPULMONARY ASPERGILLOSIS
  4. ALDACTONE [Concomitant]
     Indication: RIGHT VENTRICULAR FAILURE
  5. MUCODYNE [Concomitant]
     Indication: BRONCHOPULMONARY ASPERGILLOSIS
  6. GASCON [Concomitant]
     Indication: GASTROINTESTINAL MOTILITY DISORDER
  7. UNIPHYL [Concomitant]
     Indication: ASTHMA
  8. LANSOPRAZOLE [Concomitant]
     Indication: REFLUX OESOPHAGITIS
  9. GASMOTIN [Concomitant]
     Indication: GASTROINTESTINAL MOTILITY DISORDER

REACTIONS (1)
  - ANAEMIA [None]
